FAERS Safety Report 5732853-9 (Version None)
Quarter: 2008Q2

REPORT INFORMATION
  Report Type: 
  Country: None (occurrence: None)
  Receive Date: 20080507
  Receipt Date: 20080507
  Transmission Date: 20081010
  Serious: Yes (Other)
  Sender: FDA-Public Use
  Company Number: None

PATIENT
  Sex: Female
  Weight: 80.7403 kg

DRUGS (1)
  1. CLINDAMYCIN HCL [Suspect]
     Indication: GINGIVAL INFECTION
     Dosage: 1 CAPSULE TWICE DAILY PO
     Route: 048
     Dates: start: 20080123, end: 20080124

REACTIONS (2)
  - RASH PRURITIC [None]
  - URTICARIA [None]
